FAERS Safety Report 7206612-4 (Version None)
Quarter: 2011Q1

REPORT INFORMATION
  Report Type: 
  Country: None (occurrence: None)
  Receive Date: 20110103
  Receipt Date: 20101230
  Transmission Date: 20110831
  Serious: No
  Sender: FDA-Public Use
  Company Number: US-JNJFOC-20110100030

PATIENT
  Sex: Male
  Weight: 97.07 kg

DRUGS (17)
  1. LISINOPRIL [Concomitant]
     Indication: ILL-DEFINED DISORDER
     Route: 048
  2. NITROGLYCERIN [Concomitant]
     Indication: ILL-DEFINED DISORDER
     Route: 062
  3. PAROXETINE [Concomitant]
     Indication: ILL-DEFINED DISORDER
     Route: 048
  4. DILANTIN [Concomitant]
     Indication: ILL-DEFINED DISORDER
     Route: 048
  5. HYDROCODONE BITARTRATE + ACETAMINOPHEN [Concomitant]
     Indication: ILL-DEFINED DISORDER
     Dosage: 5/500 MG
     Route: 048
  6. DORZOLAMIDE HYDROCHLORIDE AND TIMOLOL MALEATE [Concomitant]
     Indication: ILL-DEFINED DISORDER
     Dosage: 22.3/6 MG
     Route: 048
  7. MORPHINE SULFATE [Concomitant]
     Indication: BACK INJURY
     Dosage: 3 TO 4 TIMES A DAY
     Route: 048
  8. CHOLESTYRAMINE [Concomitant]
     Indication: BLOOD CHOLESTEROL
     Route: 048
  9. ZETIA [Concomitant]
     Indication: ILL-DEFINED DISORDER
     Route: 048
  10. LORATADINE [Concomitant]
     Indication: ILL-DEFINED DISORDER
     Route: 048
  11. HYDROCHLOROTHIAZIDE [Concomitant]
     Indication: ILL-DEFINED DISORDER
     Route: 048
  12. PRILOSEC [Concomitant]
     Indication: ILL-DEFINED DISORDER
     Route: 048
  13. ASPIRIN [Concomitant]
     Indication: ILL-DEFINED DISORDER
     Route: 048
  14. NITROGLYCERIN [Concomitant]
     Route: 060
  15. FENTANYL-100 [Suspect]
     Indication: BACK INJURY
     Route: 062
  16. AMLODIPINE [Concomitant]
     Indication: ILL-DEFINED DISORDER
     Route: 048
  17. METFORMIN HCL [Concomitant]
     Indication: ILL-DEFINED DISORDER
     Route: 048

REACTIONS (2)
  - SENSORY DISTURBANCE [None]
  - DRUG DOSE OMISSION [None]
